FAERS Safety Report 6088743-8 (Version None)
Quarter: 2009Q1

REPORT INFORMATION
  Report Type: 
  Country: None (occurrence: None)
  Receive Date: 20090218
  Receipt Date: 20090218
  Transmission Date: 20090719
  Serious: Yes (Death)
  Sender: FDA-Public Use
  Company Number: None

PATIENT
  Age: 21 Year
  Sex: Male
  Weight: 79.3795 kg

DRUGS (2)
  1. KLONOPIN [Suspect]
     Indication: AFFECTIVE DISORDER
     Dosage: 0.25 MG BID PO
     Route: 048
     Dates: start: 20080723, end: 20080909
  2. KLONOPIN [Suspect]
     Indication: SOCIAL PHOBIA
     Dosage: 0.25 MG BID PO
     Route: 048
     Dates: start: 20080723, end: 20080909

REACTIONS (1)
  - COMPLETED SUICIDE [None]
